FAERS Safety Report 25228194 (Version 1)
Quarter: 2025Q2

REPORT INFORMATION
  Report Type: Spontaneous
  Country: FR (occurrence: FR)
  Receive Date: 20250423
  Receipt Date: 20250423
  Transmission Date: 20250717
  Serious: Yes (Death)
  Sender: SANDOZ
  Company Number: FR-AMGEN-FRASP2025065745

PATIENT
  Sex: Male

DRUGS (1)
  1. ADALIMUMAB [Suspect]
     Active Substance: ADALIMUMAB
     Indication: VEXAS syndrome
     Route: 065

REACTIONS (9)
  - COVID-19 [Fatal]
  - Pneumonia bacterial [Fatal]
  - Pneumonia bacterial [Fatal]
  - Pneumonia pseudomonal [Fatal]
  - Pseudomonas infection [Fatal]
  - Myocardial infarction [Fatal]
  - Cardiac failure [Fatal]
  - Septic shock [Fatal]
  - Off label use [Unknown]
